FAERS Safety Report 25804854 (Version 1)
Quarter: 2025Q3

REPORT INFORMATION
  Report Type: Spontaneous
  Country: EU (occurrence: EU)
  Receive Date: 20250915
  Receipt Date: 20250915
  Transmission Date: 20251020
  Serious: Yes (Death, Other)
  Sender: BRISTOL-MYERS SQUIBB COMPANY
  Company Number: EU-BRISTOL-MYERS SQUIBB COMPANY-2025-127082

PATIENT
  Age: 87 Year
  Sex: Male
  Weight: 58 kg

DRUGS (5)
  1. OPDIVO [Suspect]
     Active Substance: NIVOLUMAB
     Indication: Lip squamous cell carcinoma
     Dosage: 240 MG MG/2 TIMES PER WEEK
     Dates: start: 20250724, end: 20250807
  2. ERBITUX [Suspect]
     Active Substance: CETUXIMAB
     Indication: Lip squamous cell carcinoma
     Dosage: 500 MG/M2 1 TIME EVERY 2 WEEKS
     Dates: start: 20250724, end: 20250807
  3. FLUCONAZOLE [Suspect]
     Active Substance: FLUCONAZOLE
     Indication: Oral candidiasis
     Dosage: 100 MG/DAY
     Dates: start: 20250728, end: 20250807
  4. MIRTAZAPINE [Suspect]
     Active Substance: MIRTAZAPINE
     Indication: Depression
     Dosage: 15 MG/DAY
     Dates: start: 20250808, end: 20250815
  5. PIPERACILLIN AND TAZOBACTAM [Suspect]
     Active Substance: PIPERACILLIN SODIUM\TAZOBACTAM SODIUM
     Indication: Pneumonia aspiration
     Dosage: STRENGTH: 4 G/0.5 G
     Dates: start: 20250804, end: 20250811

REACTIONS (1)
  - Death [Fatal]

NARRATIVE: CASE EVENT DATE: 20250823
